FAERS Safety Report 8359319-4 (Version None)
Quarter: 2012Q2

REPORT INFORMATION
  Report Type: 
  Country: None (occurrence: None)
  Receive Date: 20120515
  Receipt Date: 20120511
  Transmission Date: 20120825
  Serious: No
  Sender: FDA-Public Use
  Company Number: US-PFIZER INC-2012115587

PATIENT
  Sex: Male
  Weight: 90.703 kg

DRUGS (10)
  1. VENLAFAXINE [Concomitant]
     Dosage: UNK
  2. NITROSTAT [Suspect]
     Indication: CHEST PAIN
     Dosage: 0.4 MG, AS NEEDED
     Dates: start: 20110301
  3. SPIRIVA [Concomitant]
     Dosage: UNK
  4. DULERA [Concomitant]
     Dosage: UNK
  5. LISINOPRIL [Concomitant]
     Dosage: UNK
  6. GLIPIZIDE [Concomitant]
     Dosage: UNK
  7. FUROSEMIDE [Concomitant]
     Dosage: UNK
  8. CARVEDILOL [Concomitant]
     Dosage: UNK
  9. OMEPRAZOLE [Concomitant]
     Dosage: UNK
  10. JANUMET [Concomitant]
     Dosage: UNK

REACTIONS (1)
  - DRUG INEFFECTIVE [None]
